FAERS Safety Report 14628138 (Version 1)
Quarter: 2018Q1

REPORT INFORMATION
  Report Type: Spontaneous
  Country: US (occurrence: US)
  Receive Date: 20180312
  Receipt Date: 20180312
  Transmission Date: 20180509
  Serious: No
  Sender: FDA-Public Use
  Company Number: US-ALLERGAN-1713909US

PATIENT
  Age: 69 Year
  Sex: Female

DRUGS (7)
  1. ESTRACE [Suspect]
     Active Substance: ESTRADIOL
     Indication: VAGINAL OPERATION
     Dosage: 1 G, QHS
     Route: 067
     Dates: start: 201701
  2. ASA [Concomitant]
     Active Substance: ASPIRIN
     Indication: HEART ALTERNATION
     Dosage: 325 MG, UNK
     Route: 048
  3. ESTRADIOL TRANSDERMAL SYSTEM [Concomitant]
     Active Substance: ESTRADIOL
     Indication: HORMONE REPLACEMENT THERAPY
     Dosage: .25 MG, Q WEEK
     Route: 062
  4. LEVOTHYROXINE. [Concomitant]
     Active Substance: LEVOTHYROXINE
     Indication: HYPOTHYROIDISM
     Dosage: 50 ?G, UNK
     Route: 048
  5. DILTIAZEM. [Concomitant]
     Active Substance: DILTIAZEM
     Indication: ARRHYTHMIA SUPRAVENTRICULAR
     Dosage: 120 MG, UNK
     Route: 048
  6. ESTRACE [Suspect]
     Active Substance: ESTRADIOL
     Indication: BLADDER OPERATION
  7. CRESTOR [Concomitant]
     Active Substance: ROSUVASTATIN CALCIUM
     Indication: HYPERCHOLESTEROLAEMIA
     Dosage: 2.5 MG, UNK
     Route: 048

REACTIONS (5)
  - Abdominal distension [Unknown]
  - Faeces soft [Unknown]
  - Diarrhoea [Recovering/Resolving]
  - Off label use [Unknown]
  - Bowel movement irregularity [Recovering/Resolving]

NARRATIVE: CASE EVENT DATE: 201701
